FAERS Safety Report 10176227 (Version 1)
Quarter: 2014Q2

REPORT INFORMATION
  Report Type: Spontaneous
  Country: US (occurrence: None)
  Receive Date: 20140515
  Receipt Date: 20140515
  Transmission Date: 20141212
  Serious: Yes (Life-Threatening, Hospitalization, Disabling, Other)
  Sender: FDA-Public Use
  Company Number: None

PATIENT
  Sex: Male
  Weight: 72.58 kg

DRUGS (9)
  1. DEPAKOTE [Suspect]
  2. THORAZINE [Suspect]
  3. HALDOL [Suspect]
  4. BLOOD PRESSURE CUFF [Concomitant]
  5. METFORMIN [Concomitant]
  6. ADVAIR [Concomitant]
  7. IBUPROFEN [Concomitant]
  8. TYLENOL [Concomitant]
  9. NOVOLOG [Concomitant]

REACTIONS (2)
  - Diabetes mellitus [None]
  - Coma [None]
